FAERS Safety Report 8166132-X (Version None)
Quarter: 2012Q1

REPORT INFORMATION
  Report Type: 
  Country: None (occurrence: None)
  Receive Date: 20120227
  Receipt Date: 20110502
  Transmission Date: 20120608
  Serious: No
  Sender: FDA-Public Use
  Company Number: US-MYLANLABS-2011S1006592

PATIENT
  Age: 18 Year
  Sex: Male
  Weight: 68.04 kg

DRUGS (1)
  1. AMNESTEEM [Suspect]
     Indication: ACNE
     Route: 048
     Dates: start: 20110304, end: 20110322

REACTIONS (2)
  - BACK PAIN [None]
  - ARTHRALGIA [None]
